FAERS Safety Report 7672080-1 (Version None)
Quarter: 2011Q3

REPORT INFORMATION
  Report Type: 
  Country: None (occurrence: None)
  Receive Date: 20110809
  Receipt Date: 20110728
  Transmission Date: 20111222
  Serious: Yes (Hospitalization, Other)
  Sender: FDA-Public Use
  Company Number: PHHY2011US68919

PATIENT
  Sex: Female
  Weight: 83.3 kg

DRUGS (10)
  1. OXYCODONE HCL [Concomitant]
     Dosage: 5 MG, PRN
     Route: 048
  2. PHOSLO [Concomitant]
     Dosage: 1334 MG, TID
     Route: 048
  3. CRESTOR [Concomitant]
     Dosage: 40 MG, BID
     Route: 048
  4. JANUVIA [Concomitant]
     Dosage: 25 MG, BID
     Route: 048
  5. VITAMIN D [Concomitant]
     Dosage: 1000 U, DAILY
     Route: 065
  6. ALLOPURINOL [Concomitant]
     Dosage: 150 MG, BID
     Route: 048
  7. CRESTOR [Concomitant]
     Dosage: 40 MG, DAILY
     Route: 048
  8. TRAMADOL HCL [Concomitant]
     Dosage: 50 MG, PRN
     Route: 048
  9. VIDAZA [Concomitant]
  10. EXJADE [Suspect]
     Indication: IRON OVERLOAD
     Dosage: 2500 MG, DAILY
     Route: 048
     Dates: start: 20081201, end: 20110404

REACTIONS (8)
  - TIBIA FRACTURE [None]
  - SUBCUTANEOUS ABSCESS [None]
  - NIGHT SWEATS [None]
  - CHILLS [None]
  - NEOPLASM PROGRESSION [None]
  - SPLENOMEGALY [None]
  - JOINT EFFUSION [None]
  - NEOPLASM MALIGNANT [None]
